FAERS Safety Report 15101455 (Version 2)
Quarter: 2018Q4

REPORT INFORMATION
  Report Type: Spontaneous
  Country: US (occurrence: US)
  Receive Date: 20180703
  Receipt Date: 20181010
  Transmission Date: 20190204
  Serious: No
  Sender: FDA-Public Use
  Company Number: US-GLAXOSMITHKLINE-US2018115958

PATIENT
  Sex: Female

DRUGS (1)
  1. BENLYSTA [Suspect]
     Active Substance: BELIMUMAB
     Indication: PRODUCT USED FOR UNKNOWN INDICATION
     Dosage: UNK, CYC
     Route: 058

REACTIONS (5)
  - Nervousness [Unknown]
  - Circumstance or information capable of leading to medication error [Unknown]
  - Wrong technique in device usage process [Unknown]
  - Product dose omission [Unknown]
  - Product prescribing error [Not Recovered/Not Resolved]
